FAERS Safety Report 8985184 (Version 1)
Quarter: 2012Q4

REPORT INFORMATION
  Report Type: 
  Country: US (occurrence: US)
  Receive Date: 20121226
  Receipt Date: 20121226
  Transmission Date: 20130627
  Serious: Yes (Hospitalization)
  Sender: FDA-Public Use
  Company Number: US-009507513-1212USA007935

PATIENT
  Age: 73 Year
  Sex: Male

DRUGS (8)
  1. SIMVASTATIN TABLETS, USP [Suspect]
     Dosage: 80 mg daily
     Route: 048
  2. AZITHROMYCIN [Interacting]
     Indication: BRONCHITIS
     Dosage: 500 mg on the first day followed by 250 mg daily for the next 4 days
     Route: 048
  3. ALLOPURINOL [Concomitant]
     Dosage: 100 mg daily
  4. PREDNISONE [Concomitant]
     Dosage: 5 mg, daily
     Route: 048
  5. LABETALOL HYDROCHLORIDE [Concomitant]
  6. BUMETANIDE [Concomitant]
  7. AMLODIPINE [Concomitant]
  8. INSULIN GLARGINE [Concomitant]

REACTIONS (2)
  - Rhabdomyolysis [Recovered/Resolved]
  - Drug interaction [Unknown]
